FAERS Safety Report 16345273 (Version 1)
Quarter: 2019Q2

REPORT INFORMATION
  Report Type: Spontaneous
  Country: TR (occurrence: TR)
  Receive Date: 20190523
  Receipt Date: 20190523
  Transmission Date: 20190711
  Serious: Yes (Other)
  Sender: FDA-Public Use
  Company Number: TR-LUPIN PHARMACEUTICALS INC.-2019-01226

PATIENT
  Age: 22 Year
  Sex: Female

DRUGS (1)
  1. AMLODIPINE AND VALSARTAN [Suspect]
     Active Substance: AMLODIPINE\VALSARTAN
     Indication: SUICIDE ATTEMPT
     Dosage: 10/160 MG, SINGLE (04-DOSAGE FORM)
     Route: 065

REACTIONS (2)
  - Intentional overdose [Unknown]
  - Exposure during pregnancy [Unknown]
